FAERS Safety Report 7404275 (Version 3)
Quarter: 2012Q4

REPORT INFORMATION
  Report Type: 
  Country: CA (occurrence: CA)
  Receive Date: 20100528
  Receipt Date: 20121102
  Transmission Date: 20130627
  Serious: Yes (Other)
  Sender: FDA-Public Use
  Company Number: PHHY2009CA34576

PATIENT
  Sex: Male

DRUGS (1)
  1. SANDOSTATIN LAR [Suspect]
     Indication: CARCINOID TUMOUR
     Dosage: 30 mg, every 3 weeks
     Route: 030
     Dates: start: 20010320

REACTIONS (13)
  - Hypoaesthesia [Unknown]
  - Heart rate irregular [Unknown]
  - Blood pressure systolic increased [Unknown]
  - Back pain [Unknown]
  - Pain in extremity [Unknown]
  - Injection site scar [Unknown]
  - Fall [Unknown]
  - Flushing [Unknown]
  - Pollakiuria [Unknown]
  - Dysuria [Unknown]
  - Injection site pain [Recovered/Resolved]
  - Pain [Unknown]
  - Diarrhoea [Not Recovered/Not Resolved]
